FAERS Safety Report 5652984-1 (Version None)
Quarter: 2008Q1

REPORT INFORMATION
  Report Type: 
  Country: None (occurrence: None)
  Receive Date: 20080306
  Receipt Date: 20080226
  Transmission Date: 20080703
  Serious: Yes (Other)
  Sender: FDA-Public Use
  Company Number: PHBS2008BR02070

PATIENT
  Age: 49 Year
  Sex: Female
  Weight: 67 kg

DRUGS (3)
  1. PARLODEL [Suspect]
     Indication: HYPERPROLACTINAEMIA
     Dosage: 1.25 MG/DAY
     Route: 048
  2. ESTRADIOL [Concomitant]
     Indication: MENOPAUSE
     Dosage: 1 MG/DAY
     Route: 048
  3. DUFASTON [Concomitant]
     Indication: MENOPAUSE
     Route: 048

REACTIONS (1)
  - PROLACTINOMA [None]
